FAERS Safety Report 7423690-8 (Version None)
Quarter: 2011Q2

REPORT INFORMATION
  Report Type: 
  Country: None (occurrence: None)
  Receive Date: 20110419
  Receipt Date: 20110330
  Transmission Date: 20111010
  Serious: No
  Sender: FDA-Public Use
  Company Number: US-B.I. PHARMACEUTICALS,INC./RIDGEFIELD-2011-BP-02396BP

PATIENT
  Sex: Male

DRUGS (18)
  1. POTASSIUM CHLORIDE [Concomitant]
     Indication: CARDIAC DISORDER
     Dosage: 10 MEQ
     Route: 048
  2. CALCIUM VITAMIN D [Concomitant]
     Dosage: 8 MG
     Route: 048
  3. LOVAZA [Concomitant]
     Route: 048
  4. OMEPRAZOLE [Concomitant]
     Indication: ABDOMINAL DISCOMFORT
     Route: 048
  5. LEVOTHYROXINE SODIUM [Concomitant]
     Dosage: 50 MCG
  6. PRADAXA [Suspect]
     Indication: ATRIAL FIBRILLATION
     Dosage: 300 MG
     Route: 048
     Dates: start: 20110120, end: 20110128
  7. SOTALOL [Concomitant]
     Dosage: 160 MG
     Route: 048
     Dates: start: 20110204
  8. FUROSEMIDE [Concomitant]
     Indication: CARDIAC DISORDER
     Dosage: 20 MG
     Route: 048
  9. DOXAZOSIN [Concomitant]
     Dosage: 8 MG
     Route: 048
  10. ASPIRIN [Concomitant]
     Indication: CARDIAC DISORDER
     Dosage: 81 MG
     Route: 048
  11. SIMVASTATIN [Concomitant]
     Indication: BLOOD CHOLESTEROL INCREASED
     Dosage: 20 MG
     Route: 048
  12. SOTALOL [Concomitant]
     Dosage: 80 MG
     Route: 048
     Dates: start: 20110120, end: 20110204
  13. AMLODIPINE [Concomitant]
     Dosage: 5 MG
     Route: 048
     Dates: start: 20110131
  14. MIRALAX [Concomitant]
     Dosage: 4 G
     Route: 048
  15. SOTALOL [Concomitant]
     Indication: CARDIAC DISORDER
     Dosage: 160 MG
     Route: 048
     Dates: end: 20110120
  16. AMLODIPINE [Concomitant]
     Indication: HYPERTENSION
     Dosage: 5 MG
     Route: 048
     Dates: end: 20110120
  17. AMLODIPINE [Concomitant]
     Dosage: 2.5 MG
     Route: 048
     Dates: start: 20110120, end: 20110131
  18. VITAMIN B-12 [Concomitant]
     Route: 048

REACTIONS (2)
  - PULSE ABNORMAL [None]
  - HYPOTENSION [None]
